FAERS Safety Report 12158886 (Version 1)
Quarter: 2016Q1

REPORT INFORMATION
  Report Type: Spontaneous
  Country: US (occurrence: None)
  Receive Date: 20160307
  Receipt Date: 20160307
  Transmission Date: 20160526
  Serious: Yes (Life-Threatening, Hospitalization, Disabling)
  Sender: FDA-Public Use
  Company Number: None

PATIENT
  Age: 69 Year
  Sex: Female
  Weight: 86.18 kg

DRUGS (3)
  1. TYLENOL [Concomitant]
     Active Substance: ACETAMINOPHEN
  2. ELIQUIS [Concomitant]
     Active Substance: APIXABAN
  3. OPDIVO [Suspect]
     Active Substance: NIVOLUMAB

REACTIONS (2)
  - Rash [None]
  - Psoriasis [None]

NARRATIVE: CASE EVENT DATE: 20151210
